FAERS Safety Report 6155412-5 (Version None)
Quarter: 2009Q2

REPORT INFORMATION
  Report Type: 
  Country: None (occurrence: None)
  Receive Date: 20090415
  Receipt Date: 20090410
  Transmission Date: 20091009
  Serious: Yes (Hospitalization)
  Sender: FDA-Public Use
  Company Number: JP-EISAI MEDICAL RESEARCH-E2020-04412-CLI-JP

PATIENT
  Age: 77 Year
  Sex: Female

DRUGS (2)
  1. DONEPEZIL HCL [Suspect]
     Indication: DEMENTIA ALZHEIMER'S TYPE
     Route: 048
     Dates: start: 20080730, end: 20090402
  2. DONEPEZIL HCL [Suspect]
     Route: 048
     Dates: start: 20090403, end: 20090403

REACTIONS (4)
  - MIOSIS [None]
  - NAUSEA [None]
  - OVERDOSE [None]
  - VOMITING [None]
